FAERS Safety Report 13469175 (Version 6)
Quarter: 2017Q2

REPORT INFORMATION
  Report Type: Report from Study
  Country: US (occurrence: US)
  Receive Date: 20170421
  Receipt Date: 20170627
  Transmission Date: 20170830
  Serious: Yes (Hospitalization)
  Sender: FDA-Public Use
  Company Number: US-ACTELION-A-US2017-152831

PATIENT
  Age: 66 Year
  Sex: Male
  Weight: 94.79 kg

DRUGS (16)
  1. UPTRAVI [Suspect]
     Active Substance: SELEXIPAG
     Indication: PULMONARY HYPERTENSION
     Dosage: 600 MCG, BID
     Route: 048
  2. VELETRI [Suspect]
     Active Substance: EPOPROSTENOL
     Indication: PULMONARY HYPERTENSION
     Dosage: 6 NG/KG, PER MIN
     Route: 042
  3. VELETRI [Suspect]
     Active Substance: EPOPROSTENOL
     Dosage: 20 NG/KG, PER MIN
     Route: 042
  4. HYDROCODONE BITARTRATE AND ACETAMINOPHEN [Concomitant]
     Active Substance: ACETAMINOPHEN\HYDROCODONE BITARTRATE
  5. AMIODARONE [Concomitant]
     Active Substance: AMIODARONE
  6. UPTRAVI [Suspect]
     Active Substance: SELEXIPAG
     Dosage: 1000 MCG, BID
     Route: 048
  7. IPRATROPIUM [Concomitant]
     Active Substance: IPRATROPIUM
  8. TAMSULOSIN [Concomitant]
     Active Substance: TAMSULOSIN
  9. OPSUMIT [Suspect]
     Active Substance: MACITENTAN
     Indication: PULMONARY HYPERTENSION
     Dosage: 10 MG, QD
     Route: 048
     Dates: start: 20160929
  10. METOPROLOL. [Concomitant]
     Active Substance: METOPROLOL
  11. METOLAZONE. [Concomitant]
     Active Substance: METOLAZONE
  12. REMODULIN [Concomitant]
     Active Substance: TREPROSTINIL
  13. UPTRAVI [Suspect]
     Active Substance: SELEXIPAG
     Dosage: 400 MCG, BID
     Route: 048
  14. FOLIC ACID. [Concomitant]
     Active Substance: FOLIC ACID
  15. PRAVASTATIN. [Concomitant]
     Active Substance: PRAVASTATIN
  16. FUROSEMIDE. [Concomitant]
     Active Substance: FUROSEMIDE

REACTIONS (11)
  - Catheter site discharge [Unknown]
  - Fluid overload [Unknown]
  - Diarrhoea [Unknown]
  - Catheter site rash [Unknown]
  - Pericardial effusion [Unknown]
  - Nausea [Unknown]
  - Catheter management [Unknown]
  - Cardiac failure [Unknown]
  - Device dislocation [Unknown]
  - Headache [Recovered/Resolved]
  - Catheter site pruritus [Unknown]
